FAERS Safety Report 5593554-3 (Version None)
Quarter: 2007Q4

REPORT INFORMATION
  Report Type: 
  Country: None (occurrence: None)
  Receive Date: 20071214
  Receipt Date: 20070102
  Transmission Date: 20080405
  Serious: Yes (Other)
  Sender: FDA-Public Use
  Company Number: 2007000673

PATIENT
  Sex: Female

DRUGS (2)
  1. XANAX [Suspect]
  2. MARIJUANA (CANNABIS) [Suspect]

REACTIONS (3)
  - DRUG ABUSE [None]
  - DRUG DEPENDENCE [None]
  - MALAISE [None]
